FAERS Safety Report 20748366 (Version 1)
Quarter: 2022Q2

REPORT INFORMATION
  Report Type: Spontaneous
  Country: JP (occurrence: JP)
  Receive Date: 20220426
  Receipt Date: 20220426
  Transmission Date: 20220721
  Serious: Yes (Other)
  Sender: FDA-Public Use
  Company Number: JP-CELGENE-JPN-20210705923

PATIENT
  Age: 63 Year
  Sex: Female

DRUGS (1)
  1. REVLIMID [Suspect]
     Active Substance: LENALIDOMIDE
     Indication: Adult T-cell lymphoma/leukaemia
     Dosage: 5 MILLIGRAM
     Route: 048
     Dates: start: 20210630, end: 20210722

REACTIONS (1)
  - Graft versus host disease [Unknown]

NARRATIVE: CASE EVENT DATE: 20210716
